FAERS Safety Report 5748968-5 (Version None)
Quarter: 2008Q2

REPORT INFORMATION
  Report Type: 
  Country: None (occurrence: None)
  Receive Date: 20080527
  Receipt Date: 20080520
  Transmission Date: 20081010
  Serious: Yes (Other)
  Sender: FDA-Public Use
  Company Number: FR-BRISTOL-MYERS SQUIBB COMPANY-14085591

PATIENT
  Age: 65 Year
  Sex: Male

DRUGS (2)
  1. MITOMYCIN [Suspect]
     Indication: BLADDER CANCER
     Route: 043
     Dates: start: 20070928, end: 20071028
  2. LEVOTHYROXINE SODIUM [Concomitant]
     Route: 048

REACTIONS (1)
  - DERMATITIS BULLOUS [None]
